FAERS Safety Report 10160915 (Version 1)
Quarter: 2014Q2

REPORT INFORMATION
  Report Type: Report from Study
  Country: US (occurrence: US)
  Receive Date: 20140508
  Receipt Date: 20140508
  Transmission Date: 20141212
  Serious: Yes (Death)
  Sender: FDA-Public Use
  Company Number: US-TAKEDA-2014TUS003688

PATIENT
  Age: 83 Year
  Sex: Female

DRUGS (1)
  1. ULORIC [Suspect]
     Indication: GOUT
     Dosage: 40 MG, QD

REACTIONS (1)
  - Death [Fatal]
